FAERS Safety Report 8601784 (Version 4)
Quarter: 2016Q1

REPORT INFORMATION
  Report Type: Spontaneous
  Country: US (occurrence: US)
  Receive Date: 20120606
  Receipt Date: 20160304
  Transmission Date: 20160526
  Serious: No
  Sender: FDA-Public Use
  Company Number: US-ASTRAZENECA-2012SE33084

PATIENT
  Age: 928 Month
  Sex: Male

DRUGS (3)
  1. SYMBICORT [Suspect]
     Active Substance: BUDESONIDE\FORMOTEROL FUMARATE DIHYDRATE
     Indication: CHRONIC OBSTRUCTIVE PULMONARY DISEASE
     Dosage: 160/4.5 UG 1 PUFF, TWO TIMES A DAY
     Route: 055
     Dates: start: 201102
  2. AMLODIPINE [Concomitant]
     Active Substance: AMLODIPINE BESYLATE
  3. ALBUTEROL. [Concomitant]
     Active Substance: ALBUTEROL
     Indication: BRONCHITIS CHRONIC

REACTIONS (14)
  - Device malfunction [Unknown]
  - Fatigue [Recovering/Resolving]
  - Muscular weakness [Unknown]
  - Hypoacusis [Unknown]
  - Drug prescribing error [Unknown]
  - Off label use [Unknown]
  - Intentional device misuse [Unknown]
  - Bronchitis chronic [Recovering/Resolving]
  - Muscle atrophy [Recovering/Resolving]
  - Device defective [Unknown]
  - Vertigo [Recovering/Resolving]
  - Headache [Recovering/Resolving]
  - Asthenia [Recovering/Resolving]
  - Drug ineffective [Unknown]

NARRATIVE: CASE EVENT DATE: 201102
